FAERS Safety Report 15629038 (Version 1)
Quarter: 2018Q4

REPORT INFORMATION
  Report Type: Spontaneous
  Country: GB (occurrence: GB)
  Receive Date: 20181116
  Receipt Date: 20181116
  Transmission Date: 20190205
  Serious: Yes (Hospitalization, Other)
  Sender: FDA-Public Use
  Company Number: GB-TEVA-2018-GB-975832

PATIENT
  Age: 66 Year
  Sex: Female
  Weight: 63.5 kg

DRUGS (16)
  1. DEXAMETHASONE. [Concomitant]
     Active Substance: DEXAMETHASONE
     Route: 065
  2. METFORMIN [Concomitant]
     Active Substance: METFORMIN HYDROCHLORIDE
     Route: 065
  3. OMEPRAZOLE. [Concomitant]
     Active Substance: OMEPRAZOLE
     Route: 065
  4. ACICLOVIR [Concomitant]
     Active Substance: ACYCLOVIR
     Route: 065
  5. ATORVASTATIN [Concomitant]
     Active Substance: ATORVASTATIN
     Route: 065
  6. CALCEOS [Concomitant]
     Active Substance: CALCIUM CARBONATE\CHOLECALCIFEROL
     Route: 065
  7. LETROZOLE. [Concomitant]
     Active Substance: LETROZOLE
     Route: 065
  8. NYSTAN [Concomitant]
     Active Substance: NYSTATIN
     Route: 065
  9. ZOMORPH [Concomitant]
     Active Substance: MORPHINE SULFATE
     Route: 065
  10. DOMPERIDONE [Concomitant]
     Active Substance: DOMPERIDONE
     Route: 065
  11. SPIRONOLACTONE. [Suspect]
     Active Substance: SPIRONOLACTONE
     Dosage: 100 MILLIGRAM DAILY; MORNING
     Route: 048
  12. AMITRIPTYLINE [Concomitant]
     Active Substance: AMITRIPTYLINE
     Route: 065
  13. CHLORAMPHENICOL [Concomitant]
     Active Substance: CHLORAMPHENICOL
     Route: 065
  14. LOPERAMIDE [Concomitant]
     Active Substance: LOPERAMIDE
     Route: 065
  15. ZARZIO [Concomitant]
     Active Substance: FILGRASTIM
     Route: 065
  16. PALBOCICLIB [Concomitant]
     Active Substance: PALBOCICLIB
     Route: 065

REACTIONS (2)
  - Blood magnesium decreased [Unknown]
  - Hyperkalaemia [Recovering/Resolving]
